FAERS Safety Report 9123049 (Version 1)
Quarter: 2013Q1

REPORT INFORMATION
  Report Type: Spontaneous
  Country: US (occurrence: None)
  Receive Date: 20130225
  Receipt Date: 20130225
  Transmission Date: 20140127
  Serious: Yes (Other)
  Sender: FDA-Public Use
  Company Number: None

PATIENT
  Age: 50 Year
  Sex: Male
  Weight: 81.65 kg

DRUGS (1)
  1. DIOVAN ^NOVARTIS^ [Suspect]
     Indication: HYPERTENSION
     Dosage: 160 MG DAILY PO
     Route: 048
     Dates: start: 20101101, end: 20130221

REACTIONS (4)
  - Abdominal pain upper [None]
  - Movement disorder [None]
  - Pain [None]
  - Dyspnoea [None]
